FAERS Safety Report 16518316 (Version 2)
Quarter: 2019Q3

REPORT INFORMATION
  Report Type: Spontaneous
  Country: US (occurrence: US)
  Receive Date: 20190702
  Receipt Date: 20190708
  Transmission Date: 20191004
  Serious: No
  Sender: FDA-Public Use
  Company Number: US-PFIZER INC-2019278812

PATIENT
  Sex: Female

DRUGS (1)
  1. CHANTIX [Suspect]
     Active Substance: VARENICLINE TARTRATE
     Dosage: UNK

REACTIONS (7)
  - Malaise [Unknown]
  - Somnolence [Unknown]
  - Drug hypersensitivity [Unknown]
  - Poor quality sleep [Unknown]
  - Rash papular [Unknown]
  - Skin burning sensation [Unknown]
  - Pain of skin [Unknown]
